FAERS Safety Report 5838779-4 (Version None)
Quarter: 2008Q3

REPORT INFORMATION
  Report Type: 
  Country: None (occurrence: None)
  Receive Date: 20080731
  Receipt Date: 20080312
  Transmission Date: 20090109
  Serious: Yes (Hospitalization)
  Sender: FDA-Public Use
  Company Number: CERZ-1000146

PATIENT
  Age: 20 Year
  Sex: Female
  Weight: 40 kg

DRUGS (2)
  1. CEREZYME [Suspect]
     Indication: GAUCHER'S DISEASE
     Dosage: 120 U/KG, Q2W, INTRAVENOUS
     Route: 042
     Dates: start: 20040212, end: 20060101
  2. CEREZYME [Suspect]
     Indication: GAUCHER'S DISEASE
     Dosage: 120 U/KG, Q2W, INTRAVENOUS
     Route: 042
     Dates: start: 20060101

REACTIONS (3)
  - DIZZINESS [None]
  - FLUSHING [None]
  - TACHYCARDIA [None]
